FAERS Safety Report 13787573 (Version 1)
Quarter: 2017Q3

REPORT INFORMATION
  Report Type: Spontaneous
  Country: IN (occurrence: IN)
  Receive Date: 20170725
  Receipt Date: 20170725
  Transmission Date: 20171127
  Serious: No
  Sender: FDA-Public Use
  Company Number: IN-LUPIN PHARMACEUTICALS INC.-2017-01912

PATIENT
  Age: 41 Year
  Sex: Female

DRUGS (9)
  1. INDERAL [Concomitant]
     Active Substance: PROPRANOLOL HYDROCHLORIDE
     Indication: PRODUCT USED FOR UNKNOWN INDICATION
     Dosage: 1 DF, BID
     Route: 048
     Dates: start: 20170329
  2. ETIZOLAM [Concomitant]
     Active Substance: ETIZOLAM
     Indication: ANXIETY
  3. PEGALUP SOLUT. 100 ML [Suspect]
     Active Substance: POLYETHYLENE GLYCOL 3350\POTASSIUM CHLORIDE\SODIUM BICARBONATE\SODIUM CHLORIDE
     Dosage: 125 ML (25 SOLUTION + 100 ML WATER), QD
     Route: 048
     Dates: start: 20170410
  4. THYRONORM [Concomitant]
     Active Substance: LEVOTHYROXINE
     Indication: THYROID DISORDER
     Dosage: 1 DF, QD
     Route: 048
     Dates: start: 2016
  5. ETIZOLAM [Concomitant]
     Active Substance: ETIZOLAM
     Indication: TENSION
     Dosage: 1 DF, QD
     Route: 048
     Dates: start: 20170329
  6. FELIZ S [Concomitant]
     Indication: TENSION
     Dosage: 1 DF, QD
     Route: 048
     Dates: start: 20170329
  7. FELIZ S [Concomitant]
     Indication: ANXIETY
  8. PEGALUP SOLUT. 100 ML [Suspect]
     Active Substance: POLYETHYLENE GLYCOL 3350\POTASSIUM CHLORIDE\SODIUM BICARBONATE\SODIUM CHLORIDE
     Indication: FLATULENCE
     Dosage: 125 ML (25 SOLUTION + 100 ML WATER), QD
     Route: 048
     Dates: start: 20170329, end: 20170408
  9. ARVAST F [Concomitant]
     Indication: BLOOD CHOLESTEROL ABNORMAL
     Dosage: 1 DF, QD
     Route: 048
     Dates: start: 20170329

REACTIONS (2)
  - Product use in unapproved indication [Unknown]
  - Swelling [Not Recovered/Not Resolved]

NARRATIVE: CASE EVENT DATE: 20170402
